FAERS Safety Report 9796791 (Version 2)
Quarter: 2014Q1

REPORT INFORMATION
  Report Type: Report from Study
  Country: JP (occurrence: JP)
  Receive Date: 20140103
  Receipt Date: 20140213
  Transmission Date: 20141002
  Serious: Yes (Death)
  Sender: FDA-Public Use
  Company Number: JP-OTSUKA-JP-2013-16220

PATIENT
  Sex: Female
  Weight: 41.4 kg

DRUGS (9)
  1. SAMSCA [Suspect]
     Indication: FLUID RETENTION
     Dosage: 7.5 MG MILLIGRAM(S), QAM
     Route: 048
     Dates: start: 20121212, end: 20121213
  2. AMIODARONE HYDROCHLORIDE [Concomitant]
     Indication: CARDIAC FAILURE
     Dosage: 200 MG MILLIGRAM(S), DAILY DOSE
     Route: 048
     Dates: start: 20121206, end: 20121213
  3. PLAVIX [Concomitant]
     Dosage: 75 MG MILLIGRAM(S), DAILY DOSE
     Route: 048
     Dates: end: 20121213
  4. BAYASPIRIN [Concomitant]
     Dosage: 100 MG MILLIGRAM(S), DAILY DOSE
     Route: 048
     Dates: end: 20121213
  5. DIOVAN [Concomitant]
     Indication: CARDIAC FAILURE
     Dosage: 80 MG MILLIGRAM(S), DAILY DOSE
     Route: 048
     Dates: end: 20121213
  6. LASIX [Concomitant]
     Indication: CARDIAC FAILURE
     Dosage: 20 MG MILLIGRAM(S), DAILY DOSE
     Route: 048
     Dates: end: 20121213
  7. HERBESSER R100 [Concomitant]
     Dosage: 200 MG MILLIGRAM(S), DAILY DOSE
     Route: 048
     Dates: end: 20121213
  8. MAGMITT [Concomitant]
     Indication: PROPHYLAXIS
     Dosage: 750 MG MILLIGRAM(S), DAILY DOSE
     Route: 048
     Dates: end: 20121213
  9. DONEPEZIL HYDROCHLORIDE [Concomitant]
     Dosage: 5 MG MILLIGRAM(S), DAILY DOSE
     Route: 048
     Dates: end: 20121213

REACTIONS (2)
  - Renal failure chronic [Fatal]
  - Cardiac failure [Fatal]
